FAERS Safety Report 5624654-7 (Version None)
Quarter: 2008Q1

REPORT INFORMATION
  Report Type: 
  Country: None (occurrence: None)
  Receive Date: 20080213
  Receipt Date: 20080206
  Transmission Date: 20080703
  Serious: No
  Sender: FDA-Public Use
  Company Number: US-ASTRAZENECA-2008UW02558

PATIENT

DRUGS (2)
  1. SEROQUEL [Suspect]
     Route: 048
  2. ADDERALL XR 10 [Concomitant]

REACTIONS (1)
  - NEUTROPHIL COUNT DECREASED [None]
